FAERS Safety Report 8787176 (Version 2)
Quarter: 2012Q4

REPORT INFORMATION
  Report Type: 
  Country: JP (occurrence: JP)
  Receive Date: 20120914
  Receipt Date: 20121002
  Transmission Date: 20130627
  Serious: Yes (Life-Threatening, Hospitalization)
  Sender: FDA-Public Use
  Company Number: JP-BAYER-2012-094093

PATIENT
  Age: 40 Year
  Sex: Female
  Weight: 44 kg

DRUGS (13)
  1. BETAFERON [Suspect]
     Indication: MULTIPLE SCLEROSIS
     Dosage: 2 miu, QOD
     Route: 058
     Dates: start: 20120717
  2. BETAFERON [Suspect]
     Indication: MULTIPLE SCLEROSIS
     Dosage: 4 miu, QOD
     Route: 058
     Dates: start: 20120805
  3. BETAFERON [Suspect]
     Indication: MULTIPLE SCLEROSIS
     Dosage: 8 miu, QOD
     Route: 058
     Dates: start: 20120828, end: 20120904
  4. CORTICOSTEROIDS [Concomitant]
     Dosage: UNK
     Dates: start: 20120707, end: 20120709
  5. CORTICOSTEROIDS [Concomitant]
     Dosage: Daily dose 40 mg
     Route: 048
     Dates: start: 201207, end: 20120724
  6. PREDONINE [Concomitant]
     Dosage: Daily dose 40 mg
     Route: 048
     Dates: start: 20120710, end: 20120724
  7. RIVOTRIL [Concomitant]
     Dosage: Daily dose .5 mg
     Route: 048
  8. LYRICA [Concomitant]
     Dosage: Daily dose 50 mg
     Route: 048
     Dates: start: 20120521
  9. SENNOSIDE [Concomitant]
     Dosage: Daily dose 12 mg
     Route: 048
  10. MYSLEE [Concomitant]
     Dosage: Daily dose 5 mg
     Route: 048
  11. LOXONIN [Concomitant]
     Indication: PAIN
     Dosage: Daily dose 60 mg
     Route: 048
  12. HERBAL PREPARATION [Concomitant]
     Dosage: Daily dose 5 g
     Route: 048
  13. SOLUMEDROL [Concomitant]
     Dosage: Daily dose 1 g
     Dates: start: 20120707, end: 20120709

REACTIONS (4)
  - Autoimmune hepatitis [Recovering/Resolving]
  - Decreased appetite [Recovering/Resolving]
  - Malaise [Recovering/Resolving]
  - Nausea [Recovering/Resolving]
